FAERS Safety Report 8609192-1 (Version None)
Quarter: 2012Q3

REPORT INFORMATION
  Report Type: 
  Country: None (occurrence: None)
  Receive Date: 20120821
  Receipt Date: 20120803
  Transmission Date: 20120928
  Serious: Yes (Death, Life-Threatening)
  Sender: FDA-Public Use
  Company Number: JP-EISAI INC-E7389-02880-CLI-JP

PATIENT
  Age: 65 Year
  Sex: Female
  Weight: 52 kg

DRUGS (5)
  1. HALAVEN [Suspect]
     Indication: METASTASES TO BONE
  2. HALAVEN [Suspect]
     Indication: BREAST CANCER RECURRENT
     Route: 041
     Dates: start: 20110812, end: 20111018
  3. HALAVEN [Suspect]
     Indication: METASTASES TO LUNG
  4. HALAVEN [Suspect]
     Indication: METASTASES TO SKIN
  5. DEXAMETHASONE SODIUM PHOSPHATE [Concomitant]
     Indication: PROPHYLAXIS
     Route: 041

REACTIONS (3)
  - NEUTROPENIA [None]
  - LEUKOPENIA [None]
  - PNEUMONIA [None]
